FAERS Safety Report 9939423 (Version 1)
Quarter: 2014Q1

REPORT INFORMATION
  Report Type: Report from Study
  Country: US (occurrence: US)
  Receive Date: 20140303
  Receipt Date: 20140303
  Transmission Date: 20141002
  Serious: No
  Sender: FDA-Public Use
  Company Number: US-ABBVIE-13P-163-1035343-00

PATIENT
  Age: 43 Year
  Sex: Female

DRUGS (12)
  1. HUMIRA [Suspect]
     Indication: CROHN^S DISEASE
     Dosage: 160 MG ON 11 JAN 2013
     Dates: start: 20130111
  2. PREMARIN [Concomitant]
     Indication: OESTROGEN REPLACEMENT THERAPY
  3. GABAPENTIN [Concomitant]
  4. ZYRTEC [Concomitant]
  5. BENADRYL [Concomitant]
  6. PREDNISONE [Concomitant]
  7. MULTIVITAMIN [Concomitant]
  8. FISH OIL [Concomitant]
  9. VITAMIN D3 [Concomitant]
  10. B12 [Concomitant]
  11. CALCIUM [Concomitant]
  12. LACTOBACILLUS ACIDOPHILUS [Concomitant]

REACTIONS (3)
  - Injection site pain [Recovered/Resolved]
  - Injection site pain [Recovered/Resolved]
  - Injection site pain [Recovered/Resolved]
